FAERS Safety Report 5075856-2 (Version None)
Quarter: 2006Q3

REPORT INFORMATION
  Report Type: 
  Country: None (occurrence: None)
  Receive Date: 20060809
  Receipt Date: 20060106
  Transmission Date: 20061208
  Serious: No
  Sender: FDA-Public Use
  Company Number: US-AMGEN-KDL164280

PATIENT
  Sex: Male

DRUGS (4)
  1. PROCRIT [Suspect]
     Indication: RENAL FAILURE CHRONIC
     Dates: start: 20050301
  2. AGGRENOX [Concomitant]
  3. VASOTEC [Concomitant]
  4. LASIX [Concomitant]

REACTIONS (1)
  - DRUG INEFFECTIVE [None]
